FAERS Safety Report 10256350 (Version 1)
Quarter: 2014Q2

REPORT INFORMATION
  Report Type: Spontaneous
  Country: US (occurrence: US)
  Receive Date: 20140624
  Receipt Date: 20140624
  Transmission Date: 20141212
  Serious: No
  Sender: FDA-Public Use
  Company Number: US-PFIZER INC-2014174110

PATIENT
  Sex: Female

DRUGS (2)
  1. EFFEXOR [Suspect]
     Indication: DEPRESSION
     Dosage: 37.5 MG, 2X/DAY (ONE AT 10:00 AM AND ONE AT 4:00 PM)
     Dates: start: 201405, end: 201406
  2. EFFEXOR [Suspect]
     Dosage: 75 MG, 2X/DAY (AT 10:00 AM AND AT 4:00 PM)
     Dates: start: 201406

REACTIONS (1)
  - Drug effect incomplete [Unknown]
